APPROVED DRUG PRODUCT: ONDANSETRON
Active Ingredient: ONDANSETRON
Strength: 8MG
Dosage Form/Route: TABLET, ORALLY DISINTEGRATING;ORAL
Application: A090469 | Product #002 | TE Code: AB
Applicant: AUROBINDO PHARMA LTD
Approved: Apr 12, 2010 | RLD: No | RS: Yes | Type: RX